FAERS Safety Report 7280819-2 (Version None)
Quarter: 2011Q1

REPORT INFORMATION
  Report Type: 
  Country: None (occurrence: None)
  Receive Date: 20110203
  Receipt Date: 20110203
  Transmission Date: 20110831
  Serious: Yes (Hospitalization)
  Sender: FDA-Public Use
  Company Number: None

PATIENT
  Sex: Female
  Weight: 70 kg

DRUGS (2)
  1. TAXOL [Suspect]
     Dosage: 280 MG
     Dates: end: 20101214
  2. CARBOPLATIN [Suspect]
     Dosage: 600 MG
     Dates: end: 20101208

REACTIONS (5)
  - PYREXIA [None]
  - UROSEPSIS [None]
  - BACK PAIN [None]
  - ESCHERICHIA TEST POSITIVE [None]
  - SEPSIS [None]
